APPROVED DRUG PRODUCT: FLUOXETINE HYDROCHLORIDE
Active Ingredient: FLUOXETINE HYDROCHLORIDE
Strength: EQ 20MG BASE
Dosage Form/Route: CAPSULE;ORAL
Application: A076165 | Product #002
Applicant: CHINA RESOURCES DOUBLE CRANE PHARMACEUTICAL CO LTD
Approved: Feb 1, 2002 | RLD: No | RS: No | Type: DISCN